FAERS Safety Report 6767382-7 (Version None)
Quarter: 2010Q2

REPORT INFORMATION
  Report Type: 
  Country: None (occurrence: None)
  Receive Date: 20100611
  Receipt Date: 20100611
  Transmission Date: 20101027
  Serious: Yes (Hospitalization)
  Sender: FDA-Public Use
  Company Number: None

PATIENT
  Age: 34 Year
  Sex: Male
  Weight: 77.1115 kg

DRUGS (1)
  1. HYDROXYZINE [Suspect]
     Indication: ANXIETY
     Dosage: 1 EVERY 6 HOURS AS NEED 4 ANXIETY PO
     Route: 048
     Dates: start: 20100515, end: 20100609

REACTIONS (10)
  - AMNESIA [None]
  - BACK INJURY [None]
  - CONTUSION [None]
  - CONVULSION [None]
  - FALL [None]
  - GRAND MAL CONVULSION [None]
  - HEAD INJURY [None]
  - HEADACHE [None]
  - JOINT INJURY [None]
  - SKIN LACERATION [None]
